FAERS Safety Report 20618853 (Version 1)
Quarter: 2022Q1

REPORT INFORMATION
  Report Type: Report from Study
  Country: BR (occurrence: BR)
  Receive Date: 20220322
  Receipt Date: 20220322
  Transmission Date: 20220423
  Serious: Yes (Other)
  Sender: FDA-Public Use
  Company Number: ALC2022BR001350

PATIENT
  Sex: Female

DRUGS (3)
  1. AZOPT [Suspect]
     Active Substance: BRINZOLAMIDE
     Indication: Product used for unknown indication
     Dosage: UNK
     Route: 065
  2. NEVANAC [Suspect]
     Active Substance: NEPAFENAC
     Indication: Product used for unknown indication
     Dosage: UNK
     Route: 065
  3. NEOVITE MAX [Concomitant]
     Indication: Product used for unknown indication
     Route: 065

REACTIONS (4)
  - Macular oedema [Unknown]
  - Retinitis pigmentosa [Unknown]
  - Condition aggravated [Unknown]
  - Visual impairment [Unknown]
